FAERS Safety Report 4567673-4 (Version None)
Quarter: 2005Q1

REPORT INFORMATION
  Report Type: 
  Country: None (occurrence: None)
  Receive Date: 20050114
  Receipt Date: 20050114
  Transmission Date: 20050727
  Serious: Yes (Life-Threatening)
  Sender: FDA-Public Use
  Company Number: None

PATIENT
  Age: 79 Year
  Sex: Female
  Weight: 51.9369 kg

DRUGS (10)
  1. COUMADIN [Suspect]
     Indication: MITRAL VALVE REPLACEMENT
     Dosage: 4 MG DAILY AND 6 MG ON MONDAY AND TUESDAY
  2. DIOVAN HCT [Concomitant]
  3. K-DUR 10 [Concomitant]
  4. LANOXIN [Concomitant]
  5. LASIX [Concomitant]
  6. ASPIRIN [Concomitant]
  7. ZOCOR [Concomitant]
  8. ENALAPRIL MALEATE [Concomitant]
  9. ADALAT [Concomitant]
  10. ALBUTEROL [Concomitant]

REACTIONS (2)
  - BLOOD DISORDER [None]
  - PROTHROMBIN TIME ABNORMAL [None]
